FAERS Safety Report 20793335 (Version 1)
Quarter: 2022Q2

REPORT INFORMATION
  Report Type: Spontaneous
  Country: DE (occurrence: DE)
  Receive Date: 20220506
  Receipt Date: 20220506
  Transmission Date: 20220720
  Serious: Yes (Hospitalization, Other)
  Sender: FDA-Public Use
  Company Number: DE-DAIICHI SANKYO EUROPE GMBH-DSE-2022-110436

PATIENT
  Age: 81 Year
  Sex: Female
  Weight: 83 kg

DRUGS (5)
  1. BEMPEDOIC ACID [Interacting]
     Active Substance: BEMPEDOIC ACID
     Indication: Hypercholesterolaemia
     Dosage: 180 MG, QD
     Route: 065
     Dates: start: 202203
  2. TORSEMIDE [Concomitant]
     Active Substance: TORSEMIDE
     Indication: Diuretic therapy
     Dosage: UNK
     Route: 065
  3. SPIRONOLACTONE [Concomitant]
     Active Substance: SPIRONOLACTONE
     Indication: Product used for unknown indication
     Dosage: UNK
     Route: 065
  4. BISOPROLOL [Concomitant]
     Active Substance: BISOPROLOL
     Indication: Hypertension
     Dosage: UNK
     Route: 065
  5. ELIQUIS [Concomitant]
     Active Substance: APIXABAN
     Indication: Atrial fibrillation
     Dosage: UNK
     Route: 065

REACTIONS (10)
  - Vertigo [Unknown]
  - Tympanic membrane perforation [Not Recovered/Not Resolved]
  - Dizziness [Not Recovered/Not Resolved]
  - Nausea [Not Recovered/Not Resolved]
  - Liver function test abnormal [Unknown]
  - Defaecation urgency [Not Recovered/Not Resolved]
  - Headache [Unknown]
  - Dyspepsia [Unknown]
  - Malaise [Unknown]
  - Drug-disease interaction [Unknown]

NARRATIVE: CASE EVENT DATE: 20220101
